FAERS Safety Report 13967663 (Version 2)
Quarter: 2017Q4

REPORT INFORMATION
  Report Type: Spontaneous
  Country: US (occurrence: US)
  Receive Date: 20170914
  Receipt Date: 20171010
  Transmission Date: 20180320
  Serious: Yes (Life-Threatening, Hospitalization, Other)
  Sender: FDA-Public Use
  Company Number: US-SUN PHARMACEUTICAL INDUSTRIES LTD-2017US-149828

PATIENT
  Age: 36 Year
  Sex: Female

DRUGS (1)
  1. METOCLOPRAMIDE. [Suspect]
     Active Substance: METOCLOPRAMIDE
     Indication: NAUSEA
     Route: 065

REACTIONS (9)
  - Acute respiratory distress syndrome [Recovering/Resolving]
  - Multiple organ dysfunction syndrome [Recovering/Resolving]
  - Myocardial ischaemia [Recovering/Resolving]
  - Acute kidney injury [Recovering/Resolving]
  - Phaeochromocytoma crisis [Unknown]
  - Acute hepatic failure [Recovering/Resolving]
  - Metabolic acidosis [Unknown]
  - Lactic acidosis [Unknown]
  - Cardiogenic shock [Recovering/Resolving]
